FAERS Safety Report 9378469 (Version 1)
Quarter: 2013Q3

REPORT INFORMATION
  Report Type: Spontaneous
  Country: US (occurrence: US)
  Receive Date: 20130702
  Receipt Date: 20130702
  Transmission Date: 20140515
  Serious: No
  Sender: FDA-Public Use
  Company Number: US-009507513-1306USA011809

PATIENT
  Age: 16 Year
  Sex: Female
  Weight: 92.97 kg

DRUGS (1)
  1. NEXPLANON [Suspect]
     Indication: CONTRACEPTION
     Dosage: 1 ROD UP TO 3 YEARS
     Route: 059
     Dates: start: 20130425

REACTIONS (3)
  - Unintended pregnancy [Unknown]
  - Polymenorrhoea [Unknown]
  - Menstruation delayed [Unknown]
